FAERS Safety Report 23635376 (Version 1)
Quarter: 2024Q1

REPORT INFORMATION
  Report Type: Other
  Country: RO (occurrence: None)
  Receive Date: 20240315
  Receipt Date: 20240315
  Transmission Date: 20240409
  Serious: Yes (Other)
  Sender: FDA-Public Use
  Company Number: RO-ROCHE-3521889

PATIENT
  Sex: Male
  Weight: 85 kg

DRUGS (2)
  1. GLOFITAMAB [Suspect]
     Active Substance: GLOFITAMAB
     Indication: Mantle cell lymphoma
     Route: 042
     Dates: start: 20230621, end: 20230621
  2. OBINUTUZUMAB [Suspect]
     Active Substance: OBINUTUZUMAB
     Indication: Mantle cell lymphoma
     Route: 042

REACTIONS (2)
  - Neutropenia [Recovering/Resolving]
  - Cytokine release syndrome [Recovering/Resolving]
